FAERS Safety Report 8587015-7 (Version None)
Quarter: 2012Q3

REPORT INFORMATION
  Report Type: 
  Country: None (occurrence: None)
  Receive Date: 20120810
  Receipt Date: 20120628
  Transmission Date: 20120928
  Serious: Yes (Death)
  Sender: FDA-Public Use
  Company Number: FR-MERCK-1207FRA00011

PATIENT

DRUGS (1)
  1. STROMECTOL [Suspect]
     Route: 048
     Dates: start: 20030101, end: 20030101

REACTIONS (1)
  - DEATH [None]
